FAERS Safety Report 9162910 (Version 1)
Quarter: 2013Q1

REPORT INFORMATION
  Report Type: Spontaneous
  Country: IL (occurrence: IL)
  Receive Date: 20130314
  Receipt Date: 20130314
  Transmission Date: 20140127
  Serious: Yes (Other)
  Sender: FDA-Public Use
  Company Number: IL-B.I. PHARMACEUTICALS,INC./RIDGEFIELD-2013-AP-00172RI

PATIENT
  Age: 81 Year
  Sex: Male

DRUGS (8)
  1. PRADAXA [Suspect]
     Indication: ATRIAL FIBRILLATION
     Dosage: 220 MG
     Route: 048
  2. TAMSULOSIN [Suspect]
     Indication: DYSURIA
     Dates: start: 20130219, end: 20130222
  3. PREDNISONE [Concomitant]
     Indication: ARTHRITIS
  4. AMLODIPINE [Concomitant]
  5. METHOTREXATE [Concomitant]
     Indication: ARTHRITIS
  6. SOME UNSPECIFIED INHALERS [Concomitant]
  7. SYMBALTA [Concomitant]
     Indication: ANALGESIC THERAPY
  8. UNSPECIFIED MEDICATION FOR PAIN RELIEF (RECOMMENDED BY ORTHOPEDIST) [Concomitant]
     Indication: ANALGESIC THERAPY

REACTIONS (5)
  - Back pain [Not Recovered/Not Resolved]
  - Bedridden [Not Recovered/Not Resolved]
  - Dysuria [Not Recovered/Not Resolved]
  - Constipation [Not Recovered/Not Resolved]
  - Renal cyst [Not Recovered/Not Resolved]
